FAERS Safety Report 4725191-4 (Version None)
Quarter: 2005Q3

REPORT INFORMATION
  Report Type: 
  Country: None (occurrence: None)
  Receive Date: 20050725
  Receipt Date: 20050718
  Transmission Date: 20060218
  Serious: Yes (Life-Threatening)
  Sender: FDA-Public Use
  Company Number: 05USA0145

PATIENT
  Age: 77 Year
  Sex: Male

DRUGS (2)
  1. GLIADEL [Suspect]
     Indication: GLIOBLASTOMA
     Dosage: 7.7 MG/WAFER; 8 WAFERS
     Dates: start: 20040917, end: 20040920
  2. AVITENE (COLLAGEN) (POWDER) [Concomitant]

REACTIONS (8)
  - CEREBRAL HAEMATOMA [None]
  - CONVULSION [None]
  - DEPRESSED LEVEL OF CONSCIOUSNESS [None]
  - HEMIPARESIS [None]
  - LOCALISED OEDEMA [None]
  - LOSS OF CONSCIOUSNESS [None]
  - POST PROCEDURAL COMPLICATION [None]
  - PROCEDURAL SITE REACTION [None]
